FAERS Safety Report 9445004 (Version 1)
Quarter: 2013Q3

REPORT INFORMATION
  Report Type: Report from Study
  Country: DE (occurrence: DE)
  Receive Date: 20130807
  Receipt Date: 20130807
  Transmission Date: 20140515
  Serious: Yes (Life-Threatening, Hospitalization, Other)
  Sender: FDA-Public Use
  Company Number: DE-009507513-1011USA01919

PATIENT
  Age: 64 Year
  Sex: Female
  Weight: 83 kg

DRUGS (7)
  1. EZETIMIBE (+) SIMVASTATIN [Suspect]
     Indication: ACUTE CORONARY SYNDROME
     Dosage: 10/40
     Route: 048
     Dates: start: 20100310
  2. EZETIMIBE (+) SIMVASTATIN [Suspect]
     Dosage: UNK
     Route: 048
  3. AMLODIPINE BESYLATE [Concomitant]
     Dosage: 5 MG TOTAL DAILY
     Route: 048
     Dates: start: 20100712
  4. RAMIPRIL [Concomitant]
     Dosage: 5 MG TOTAL DAILY
     Route: 048
     Dates: start: 20100225
  5. METOPROLOL [Concomitant]
     Dosage: 50 MG TOTAL DAILY
     Route: 048
     Dates: start: 20100308
  6. ASPIRIN [Concomitant]
     Dosage: 100 MG TOTAL DAILY
     Route: 048
     Dates: start: 20100308
  7. CLOPIDOGREL HYDROCHLORIDE [Concomitant]
     Dosage: 75 MG TOTAL DAILY
     Route: 048
     Dates: start: 20100308

REACTIONS (3)
  - Pancreatitis [Recovered/Resolved]
  - Cholelithiasis [Recovered/Resolved]
  - Pulmonary granuloma [Unknown]
